FAERS Safety Report 9552635 (Version 1)
Quarter: 2013Q3

REPORT INFORMATION
  Report Type: Spontaneous
  Country: NZ (occurrence: US)
  Receive Date: 20130925
  Receipt Date: 20130925
  Transmission Date: 20140515
  Serious: Yes (Other)
  Sender: FDA-Public Use
  Company Number: NZ-NAPPMUNDI-USA-2012-0089924

PATIENT
  Sex: Male

DRUGS (2)
  1. MORPHINE SULFATE (SIMILAR TO NDA 19-516) [Suspect]
     Indication: PAIN
  2. OXYCONTIN (NDA 22-272) [Suspect]
     Indication: PAIN

REACTIONS (1)
  - Drug dependence [Unknown]
